FAERS Safety Report 17856854 (Version 1)
Quarter: 2020Q2

REPORT INFORMATION
  Report Type: Spontaneous
  Country: AR (occurrence: AR)
  Receive Date: 20200603
  Receipt Date: 20200603
  Transmission Date: 20200714
  Serious: Yes (Other)
  Sender: FDA-Public Use
  Company Number: AR-PFIZER INC-2020214441

PATIENT
  Age: 50 Year

DRUGS (2)
  1. SUTENT [Suspect]
     Active Substance: SUNITINIB MALATE
     Dosage: UNK
     Dates: start: 2020
  2. SUTENT [Suspect]
     Active Substance: SUNITINIB MALATE
     Indication: RENAL CANCER
     Dosage: UNK
     Dates: start: 201906, end: 201909

REACTIONS (7)
  - Second primary malignancy [Unknown]
  - Pyrexia [Unknown]
  - Acute myeloid leukaemia [Unknown]
  - Neoplasm progression [Unknown]
  - Gastrointestinal perforation [Unknown]
  - Leukocytosis [Unknown]
  - Platelet disorder [Unknown]

NARRATIVE: CASE EVENT DATE: 201909
